FAERS Safety Report 9530378 (Version 2)
Quarter: 2013Q3

REPORT INFORMATION
  Report Type: Report from Study
  Country: US (occurrence: US)
  Receive Date: 20130918
  Receipt Date: 20130918
  Transmission Date: 20140515
  Serious: Yes (Death)
  Sender: FDA-Public Use
  Company Number: US-ROCHE-1045610

PATIENT
  Age: 65 Year
  Sex: Female
  Weight: 72.7 kg

DRUGS (17)
  1. BLINDED TOCILIZUMAB [Suspect]
     Indication: RHEUMATOID ARTHRITIS
     Route: 042
     Dates: start: 20100216
  2. BLINDED TOCILIZUMAB [Suspect]
     Dosage: LAST DOSE PRIOR TO SAE: 17 FEB 2011
     Route: 042
     Dates: start: 20100319
  3. TOCILIZUMAB [Suspect]
     Indication: RHEUMATOID ARTHRITIS
     Dosage: LAST DOSE PRIOR TO SAE: 16 FEB 2012
     Route: 042
     Dates: start: 20110322
  4. METHOTREXATE [Suspect]
     Indication: RHEUMATOID ARTHRITIS
     Dosage: LAST DOSE PRIOR TO SAE: 17/FEB/2012
     Route: 048
     Dates: start: 20110415, end: 20120217
  5. METHOTREXATE [Suspect]
     Route: 048
     Dates: start: 20100319
  6. ALEVE [Concomitant]
     Indication: RHEUMATOID ARTHRITIS
     Route: 048
     Dates: start: 2004
  7. ALEVE [Concomitant]
     Route: 048
     Dates: start: 20100201
  8. FOLIC ACID [Concomitant]
     Route: 048
     Dates: start: 20100319
  9. ESTER-C [Concomitant]
     Route: 065
     Dates: start: 200902
  10. VITAMIN B12 [Concomitant]
     Route: 065
     Dates: start: 200902
  11. SUPER B COMPLEX [Concomitant]
     Route: 065
     Dates: start: 200902
  12. GLUCOSAMINE CHONDROITIN COMPLEX [Concomitant]
     Dosage: 4500/3600 MG
     Route: 065
     Dates: start: 200902
  13. VITAMIN E [Concomitant]
     Route: 065
     Dates: start: 200902
  14. VITAMIN D3 [Concomitant]
     Route: 065
     Dates: start: 200902
  15. LYSINE [Concomitant]
     Route: 065
     Dates: start: 200902
  16. OMEGA 3 FATTY ACIDS [Concomitant]
     Route: 065
     Dates: start: 200902
  17. FOLINIC ACID [Concomitant]
     Route: 065
     Dates: start: 20100821, end: 20120218

REACTIONS (1)
  - Small cell lung cancer [Fatal]
